FAERS Safety Report 5621170-3 (Version None)
Quarter: 2008Q1

REPORT INFORMATION
  Report Type: 
  Country: None (occurrence: None)
  Receive Date: 20080114
  Receipt Date: 20061206
  Transmission Date: 20080703
  Serious: Yes (Hospitalization)
  Sender: FDA-Public Use
  Company Number: A03200607347

PATIENT
  Sex: Female

DRUGS (3)
  1. PLAVIX [Suspect]
     Indication: ANGINA UNSTABLE
     Dosage: ORAL
     Route: 048
     Dates: start: 20041101, end: 20051001
  2. PLAVIX [Suspect]
     Indication: CARDIAC ARREST
     Dosage: ORAL
     Route: 048
     Dates: start: 20041101, end: 20051001
  3. PLAVIX [Suspect]
     Indication: TRANSIENT ISCHAEMIC ATTACK
     Dosage: ORAL
     Route: 048
     Dates: start: 20041101, end: 20051001

REACTIONS (1)
  - HAEMORRHAGE [None]
